FAERS Safety Report 7027854-7 (Version None)
Quarter: 2010Q4

REPORT INFORMATION
  Report Type: 
  Country: None (occurrence: None)
  Receive Date: 20101005
  Receipt Date: 20100927
  Transmission Date: 20110411
  Serious: Yes (Hospitalization)
  Sender: FDA-Public Use
  Company Number: JP-BIOGENIDEC-2010BI028352

PATIENT
  Age: 46 Year
  Sex: Male

DRUGS (13)
  1. AVONEX [Suspect]
     Indication: RELAPSING-REMITTING MULTIPLE SCLEROSIS
     Route: 030
     Dates: start: 20090805, end: 20090801
  2. AVONEX [Suspect]
     Route: 030
     Dates: start: 20090801, end: 20100813
  3. PREDONINE [Concomitant]
     Dates: start: 19960101
  4. GASTER [Concomitant]
  5. CEROCRAL [Concomitant]
  6. CEPHADOL [Concomitant]
     Dates: start: 20000222
  7. MYONAL [Concomitant]
     Dates: start: 20010118
  8. LENDORMIN [Concomitant]
     Dates: start: 20041111
  9. HALCION [Concomitant]
     Dates: start: 20050825
  10. CATLEP [Concomitant]
     Dates: start: 19990525
  11. XALATAN [Concomitant]
     Dates: start: 20040819
  12. AZOPT [Concomitant]
     Dates: start: 20090218
  13. TIMOLOL MALEATE [Concomitant]
     Dates: start: 20040819

REACTIONS (1)
  - LYMPHOMA [None]
